FAERS Safety Report 19261456 (Version 6)
Quarter: 2025Q3

REPORT INFORMATION
  Report Type: Report from Study
  Country: EU (occurrence: EU)
  Receive Date: 20210515
  Receipt Date: 20250808
  Transmission Date: 20251021
  Serious: Yes (Congenital Anomaly, Other)
  Sender: AUROBINDO
  Company Number: EU-VIIV HEALTHCARE LIMITED-PT2021GSK095546

PATIENT
  Age: 24 Week

DRUGS (6)
  1. TENOFOVIR [Suspect]
     Active Substance: TENOFOVIR
     Indication: HIV infection
     Dosage: 245 MILLIGRAM, ONCE A DAY
     Route: 064
  2. EMTRICITABINE [Suspect]
     Active Substance: EMTRICITABINE
     Indication: HIV infection
     Dosage: 200 MILLIGRAM, ONCE A DAY
     Route: 064
  3. DEXTROSE\SODIUM CHLORIDE [Suspect]
     Active Substance: DEXTROSE\SODIUM CHLORIDE
     Indication: Diabetes with hyperosmolarity
     Route: 064
  4. DESMOPRESSIN [Suspect]
     Active Substance: DESMOPRESSIN
     Indication: Diabetes insipidus
     Dosage: 0.06 MILLIGRAM, ONCE A DAY
     Route: 064
  5. DESMOPRESSIN [Suspect]
     Active Substance: DESMOPRESSIN
     Dosage: 0.12 MILLIGRAM, ONCE A DAY
     Route: 064
  6. TIVICAY [Suspect]
     Active Substance: DOLUTEGRAVIR SODIUM
     Indication: HIV infection
     Dosage: 50 MILLIGRAM, ONCE A DAY
     Route: 064

REACTIONS (4)
  - Pulmonary hypoplasia [Unknown]
  - Foetal growth restriction [Unknown]
  - Condition aggravated [Unknown]
  - Foetal exposure during pregnancy [Unknown]
